FAERS Safety Report 5988671-X (Version None)
Quarter: 2008Q4

REPORT INFORMATION
  Report Type: 
  Country: None (occurrence: None)
  Receive Date: 20081210
  Receipt Date: 20081208
  Transmission Date: 20090506
  Serious: Yes (Death, Hospitalization)
  Sender: FDA-Public Use
  Company Number: DK-ABBOTT-08P-044-0491545-00

PATIENT
  Sex: Female

DRUGS (2)
  1. HUMIRA [Suspect]
     Indication: RHEUMATOID ARTHRITIS
     Route: 058
     Dates: start: 20030211, end: 20080502
  2. METHOTREXATE [Concomitant]
     Indication: RHEUMATOID ARTHRITIS
     Dates: start: 20040721, end: 20080502

REACTIONS (6)
  - HEPATIC STEATOSIS [None]
  - MENINGIOMA [None]
  - MULTI-ORGAN FAILURE [None]
  - NEPHROSCLEROSIS [None]
  - PULMONARY OEDEMA [None]
  - SEPTIC SHOCK [None]
